FAERS Safety Report 9773152 (Version 1)
Quarter: 2013Q4

REPORT INFORMATION
  Report Type: Spontaneous
  Country: US (occurrence: US)
  Receive Date: 20131219
  Receipt Date: 20131219
  Transmission Date: 20140711
  Serious: Yes (Other)
  Sender: FDA-Public Use
  Company Number: US-TAKEDA-2013TUS003276

PATIENT
  Sex: 0

DRUGS (2)
  1. DEXLANSOPRAZOLE [Suspect]
  2. DABIGATRAN [Suspect]
     Dosage: UNK

REACTIONS (2)
  - Cerebral infarction [Unknown]
  - Drug interaction [Unknown]
